FAERS Safety Report 9180163 (Version 1)
Quarter: 2013Q1

REPORT INFORMATION
  Report Type: Spontaneous
  Country: GB (occurrence: GB)
  Receive Date: 20130321
  Receipt Date: 20130321
  Transmission Date: 20140127
  Serious: Yes (Other)
  Sender: FDA-Public Use
  Company Number: PHFR2002GB01444

PATIENT
  Sex: Female

DRUGS (6)
  1. CLOZARIL [Suspect]
     Indication: SCHIZOAFFECTIVE DISORDER
     Dosage: 400 MG
     Route: 048
     Dates: start: 20011204
  2. CLOZARIL [Suspect]
     Dosage: 300 MG
     Route: 048
  3. PRIADEL [Suspect]
     Indication: MOOD SWINGS
     Dosage: 20 ML, QD
     Route: 048
  4. FLUOXETINE [Concomitant]
     Indication: ANTIDEPRESSANT THERAPY
     Dosage: 60 MG
     Route: 048
  5. HALOPERIDOL [Concomitant]
     Indication: PSYCHOTIC DISORDER
     Dosage: 5 MG
     Route: 048
  6. LORAZEPAM [Concomitant]
     Indication: AGITATION
     Dosage: 2 MG
     Route: 048

REACTIONS (17)
  - Urinary tract infection [Recovered/Resolved]
  - Polyuria [Recovered/Resolved]
  - Blood urine present [Recovered/Resolved]
  - Toxicity to various agents [Recovering/Resolving]
  - Confusional state [Recovering/Resolving]
  - Dysarthria [Recovering/Resolving]
  - Memory impairment [Recovering/Resolving]
  - Coordination abnormal [Recovering/Resolving]
  - Intention tremor [Recovering/Resolving]
  - Myoclonus [Unknown]
  - Thirst [Recovering/Resolving]
  - Drug level increased [Recovering/Resolving]
  - White blood cell count increased [Recovered/Resolved]
  - Protein urine present [Recovered/Resolved]
  - Fatigue [Recovering/Resolving]
  - Electroencephalogram abnormal [Recovering/Resolving]
  - Amnesia [Unknown]
